FAERS Safety Report 22052608 (Version 1)
Quarter: 2023Q1

REPORT INFORMATION
  Report Type: Other
  Country: None (occurrence: US)
  Receive Date: 20230302
  Receipt Date: 20230302
  Transmission Date: 20230418
  Serious: Yes (Life-Threatening, Hospitalization, Other)
  Sender: FDA-Public Use
  Company Number: US-ASPIRO PHARMA LTD-2138618

PATIENT
  Age: 37 Year
  Sex: Male

DRUGS (10)
  1. LIDOCAINE HYDROCHLORIDE [Suspect]
     Active Substance: LIDOCAINE HYDROCHLORIDE
     Indication: Anaesthesia
     Route: 065
  2. ARTICAINE [Suspect]
     Active Substance: ARTICAINE
     Route: 065
  3. MIDAZOLAM [Suspect]
     Active Substance: MIDAZOLAM
     Route: 042
  4. PROPOFOL [Suspect]
     Active Substance: PROPOFOL
     Route: 065
  5. SUCCINYLCHOLINE CHLORIDE [Suspect]
     Active Substance: SUCCINYLCHOLINE CHLORIDE
     Route: 065
  6. OXYCODONE. [Concomitant]
     Active Substance: OXYCODONE HYDROCHLORIDE
     Route: 065
  7. EPINEPHRINE [Concomitant]
     Active Substance: EPINEPHRINE
     Route: 065
  8. Dioctyl-sulfosuccinic acid [Concomitant]
     Route: 065
  9. SENNA LEAF [Concomitant]
     Active Substance: SENNA LEAF
     Route: 065
  10. SODIUM CHLORIDE [Concomitant]
     Active Substance: SODIUM CHLORIDE
     Route: 065

REACTIONS (4)
  - Hypoxia [Unknown]
  - Electrocardiogram ST segment elevation [Recovered/Resolved]
  - Toxicity to various agents [Unknown]
  - Overdose [Unknown]
